FAERS Safety Report 20855533 (Version 1)
Quarter: 2022Q2

REPORT INFORMATION
  Report Type: Spontaneous
  Country: DE (occurrence: DE)
  Receive Date: 20220520
  Receipt Date: 20220520
  Transmission Date: 20220721
  Serious: Yes (Hospitalization, Other)
  Sender: FDA-Public Use
  Company Number: None

PATIENT
  Age: 26 Year
  Sex: Male
  Weight: 72 kg

DRUGS (2)
  1. CIPROFLOXACIN [Suspect]
     Active Substance: CIPROFLOXACIN
     Indication: Prostatitis
     Dosage: 500 MILLIGRAM (INITIATED ON 14-JAN-2018)
     Route: 048
     Dates: end: 20180202
  2. CIPROFLOXACIN [Suspect]
     Active Substance: CIPROFLOXACIN
     Dosage: 250 MILLIGRAM (START DATE: 25-DEC-2017)
     Route: 048
     Dates: end: 20180101

REACTIONS (43)
  - Insomnia [Unknown]
  - Iron overload [Unknown]
  - Depression [Unknown]
  - Polyneuropathy [Unknown]
  - Mental impairment [Unknown]
  - Disability [Unknown]
  - Seizure [Unknown]
  - Depressed level of consciousness [Unknown]
  - Myoclonus [Unknown]
  - Gait disturbance [Unknown]
  - Disturbance in attention [Unknown]
  - Circadian rhythm sleep disorder [Unknown]
  - Abdominal pain lower [Unknown]
  - Sleep disorder [Unknown]
  - Enteritis [Unknown]
  - Visual impairment [Unknown]
  - Constipation [Unknown]
  - Head discomfort [Unknown]
  - Somnolence [Unknown]
  - Impaired self-care [Unknown]
  - Auditory disorder [Unknown]
  - Sick leave [Unknown]
  - Headache [Unknown]
  - Photophobia [Unknown]
  - Pain in extremity [Unknown]
  - Hypersensitivity [Unknown]
  - Impaired quality of life [Unknown]
  - Nervousness [Unknown]
  - Toxicity to various agents [Unknown]
  - Paraesthesia [Unknown]
  - Hyperacusis [Unknown]
  - Fatigue [Unknown]
  - Chronic fatigue syndrome [Unknown]
  - Hypoaesthesia [Unknown]
  - Feeling abnormal [Unknown]
  - Depersonalisation/derealisation disorder [Unknown]
  - Metabolic disorder [Unknown]
  - Aphasia [Unknown]
  - Nervous system disorder [Unknown]
  - Dysbiosis [Unknown]
  - Dizziness [Unknown]
  - Confusional state [Unknown]
  - Muscle twitching [Unknown]

NARRATIVE: CASE EVENT DATE: 20171201
